FAERS Safety Report 7206128-5 (Version None)
Quarter: 2010Q4

REPORT INFORMATION
  Report Type: 
  Country: None (occurrence: None)
  Receive Date: 20101229
  Receipt Date: 20101229
  Transmission Date: 20110411
  Serious: No
  Sender: FDA-Public Use
  Company Number: None

PATIENT
  Age: 60 Year
  Sex: Male
  Weight: 114 kg

DRUGS (1)
  1. FOSINOPRIL SODIUM [Suspect]
     Dosage: 40 MG EVERY DAY PO
     Route: 048
     Dates: start: 20070508, end: 20101018

REACTIONS (1)
  - ANGIOEDEMA [None]
